FAERS Safety Report 18828117 (Version 2)
Quarter: 2021Q1

REPORT INFORMATION
  Report Type: Report from Study
  Country: None (occurrence: US)
  Receive Date: 20210202
  Receipt Date: 20210301
  Transmission Date: 20210419
  Serious: Yes (Other)
  Sender: FDA-Public Use
  Company Number: US-ABBVIE-20K-163-3659134-00

PATIENT
  Sex: Male

DRUGS (2)
  1. VENCLEXTA [Suspect]
     Active Substance: VENETOCLAX
     Indication: HODGKIN^S DISEASE
     Route: 048
  2. VENCLEXTA [Suspect]
     Active Substance: VENETOCLAX
     Indication: HODGKIN^S DISEASE
     Dosage: 8 TABLET(S) BY MOUTH DAILY. TAKE WITH A MEAL AND WATER AT APPROXIMATELY SAME TIME EACH DAY
     Route: 048

REACTIONS (3)
  - Neoplasm malignant [Unknown]
  - Off label use [Unknown]
  - COVID-19 [Unknown]
